FAERS Safety Report 7714006-8 (Version None)
Quarter: 2011Q3

REPORT INFORMATION
  Report Type: 
  Country: None (occurrence: None)
  Receive Date: 20110826
  Receipt Date: 20110817
  Transmission Date: 20111222
  Serious: Yes (Other)
  Sender: FDA-Public Use
  Company Number: US-RB-031601-11

PATIENT
  Sex: Male

DRUGS (1)
  1. SUBOXONE [Suspect]
     Indication: PRODUCT USED FOR UNKNOWN INDICATION
     Dosage: IS TRYING TO WEAN HIMSELF OFF SUBOXONE-UNKNOWN EXACT DOSING DETAILS
     Route: 065

REACTIONS (2)
  - UNDERDOSE [None]
  - SUICIDAL IDEATION [None]
